FAERS Safety Report 26172141 (Version 1)
Quarter: 2025Q4

REPORT INFORMATION
  Report Type: Spontaneous
  Country: US (occurrence: US)
  Receive Date: 20251218
  Receipt Date: 20251218
  Transmission Date: 20260118
  Serious: No
  Sender: SANOFI AVENTIS
  Company Number: US-SA-2025SA376393

PATIENT
  Sex: Female
  Weight: 92.9 kg

DRUGS (31)
  1. DUPIXENT [Suspect]
     Active Substance: DUPILUMAB
     Indication: Alopecia totalis
     Dosage: 300 MG, QOW
     Route: 058
  2. DUPIXENT [Suspect]
     Active Substance: DUPILUMAB
     Indication: Migraine without aura
  3. DUPIXENT [Suspect]
     Active Substance: DUPILUMAB
     Indication: Illness
  4. MOXIFLOXACIN [Concomitant]
     Active Substance: MOXIFLOXACIN
     Dosage: UNK
  5. FAMOTIDINE [Concomitant]
     Active Substance: FAMOTIDINE
     Dosage: UNK
  6. BACLOFEN [Concomitant]
     Active Substance: BACLOFEN
     Dosage: UNK
  7. TIZANIDINE HYDROCHLORIDE [Concomitant]
     Active Substance: TIZANIDINE HYDROCHLORIDE
     Dosage: UNK
  8. PREGABALIN [Concomitant]
     Active Substance: PREGABALIN
     Dosage: UNK
  9. PROMETHAZINE HYDROCHLORIDE [Concomitant]
     Active Substance: PROMETHAZINE HYDROCHLORIDE
     Dosage: UNK
  10. LIOTHYRONINE SODIUM [Concomitant]
     Active Substance: LIOTHYRONINE SODIUM
     Dosage: UNK
  11. SOOLANTRA [Concomitant]
     Active Substance: IVERMECTIN
     Dosage: UNK
  12. SYMBICORT [Concomitant]
     Active Substance: BUDESONIDE\FORMOTEROL FUMARATE DIHYDRATE
     Dosage: UNK
  13. CHLORHEXIDINE GLUCONATE [Concomitant]
     Active Substance: CHLORHEXIDINE GLUCONATE
     Dosage: UNK
  14. FLUOROMETHOLONE [Concomitant]
     Active Substance: FLUOROMETHOLONE
     Dosage: UNK
  15. LACTASE [Concomitant]
     Active Substance: LACTASE
     Dosage: UNK
  16. OPZELURA [Concomitant]
     Active Substance: RUXOLITINIB PHOSPHATE
     Dosage: UNK
  17. IRON [Concomitant]
     Active Substance: IRON
     Dosage: UNK
  18. PROGESTERONE [Concomitant]
     Active Substance: PROGESTERONE
     Dosage: UNK
  19. MODERNA COVID-19 VACCINE 2024-2025 FORMULA [Concomitant]
     Dosage: UNK
  20. XHANCE [Concomitant]
     Active Substance: FLUTICASONE PROPIONATE
     Dosage: UNK
  21. METFORMIN HYDROCHLORIDE [Concomitant]
     Active Substance: METFORMIN HYDROCHLORIDE
     Dosage: UNK
  22. LEVOTHYROXINE SODIUM [Concomitant]
     Active Substance: LEVOTHYROXINE SODIUM
     Dosage: UNK
  23. OMEPRAZOLE [Concomitant]
     Active Substance: OMEPRAZOLE
     Dosage: UNK
  24. METHOCARBAMOL [Concomitant]
     Active Substance: METHOCARBAMOL
     Dosage: UNK
  25. HYDROXYCHLOROQUINE SULFATE [Concomitant]
     Active Substance: HYDROXYCHLOROQUINE SULFATE
     Dosage: UNK
  26. AZELASTINE HYDROCHLORIDE [Concomitant]
     Active Substance: AZELASTINE HYDROCHLORIDE
     Dosage: UNK
  27. MONTELUKAST SODIUM [Concomitant]
     Active Substance: MONTELUKAST SODIUM
     Dosage: UNK
  28. ZOLPIDEM TARTRATE [Concomitant]
     Active Substance: ZOLPIDEM TARTRATE
     Dosage: UNK
  29. ONDANSETRON ODT [ONDANSETRON HYDROCHLORIDE] [Concomitant]
     Dosage: UNK
  30. MORPHINE SULFATE [Concomitant]
     Active Substance: MORPHINE SULFATE
     Dosage: UNK
  31. CETIRIZINE HCL [Concomitant]
     Active Substance: CETIRIZINE HYDROCHLORIDE
     Dosage: UNK

REACTIONS (1)
  - Product use in unapproved indication [Unknown]
